FAERS Safety Report 8059523-9 (Version None)
Quarter: 2012Q1

REPORT INFORMATION
  Report Type: 
  Country: None (occurrence: None)
  Receive Date: 20120120
  Receipt Date: 20120112
  Transmission Date: 20120608
  Serious: Yes (Hospitalization)
  Sender: FDA-Public Use
  Company Number: NL-SANOFI-AVENTIS-2012SA002589

PATIENT
  Age: 75 Year
  Sex: Female

DRUGS (1)
  1. HYDROXYCHLOROQUINE SULFATE [Suspect]
     Indication: RHEUMATOID ARTHRITIS
     Route: 065

REACTIONS (9)
  - DYSPNOEA [None]
  - PULMONARY OEDEMA [None]
  - DIASTOLIC DYSFUNCTION [None]
  - CARDIOMYOPATHY [None]
  - ACUTE LEFT VENTRICULAR FAILURE [None]
  - BUNDLE BRANCH BLOCK LEFT [None]
  - LEFT VENTRICULAR HYPERTROPHY [None]
  - EJECTION FRACTION DECREASED [None]
  - SINUS TACHYCARDIA [None]
